FAERS Safety Report 5007109-2 (Version None)
Quarter: 2006Q1

REPORT INFORMATION
  Report Type: 
  Country: None (occurrence: None)
  Receive Date: 20060320
  Receipt Date: 20050622
  Transmission Date: 20060701
  Serious: Yes (Other)
  Sender: FDA-Public Use
  Company Number: 2005-06-1618

PATIENT
  Sex: Female

DRUGS (1)
  1. PEG-INTRON [Suspect]

REACTIONS (1)
  - COLITIS ISCHAEMIC [None]
